FAERS Safety Report 8484881-0 (Version None)
Quarter: 2012Q3

REPORT INFORMATION
  Report Type: 
  Country: None (occurrence: None)
  Receive Date: 20120703
  Receipt Date: 20120625
  Transmission Date: 20120928
  Serious: Yes (Other)
  Sender: FDA-Public Use
  Company Number: JP-SANOFI-AVENTIS-2012SA029640

PATIENT
  Age: 64 Year
  Sex: Male
  Weight: 61.15 kg

DRUGS (6)
  1. TAXOTERE [Suspect]
     Dosage: EVERY 4 WEEKS
     Route: 042
     Dates: start: 20100305, end: 20120501
  2. ESTRACYT [Concomitant]
     Indication: PROSTATE CANCER
     Route: 048
     Dates: start: 20110509
  3. LEUPROLIDE ACETATE [Concomitant]
     Dosage: 3.75 MG/24H EVERY FOUR WEEKS
     Dates: start: 20080121
  4. DEXAMETHASONE [Concomitant]
     Indication: PREMEDICATION
     Dosage: DAILY DOSE, 6.6 MG/DAYEVERY ADMINISTRATION OF TAXOTERE
  5. ZOMETA [Concomitant]
     Indication: PREMEDICATION
     Dosage: EVERY ADMINISTRATION OF TAXOTERE
     Route: 042
  6. TAXOTERE [Suspect]
     Dosage: FREQUENCY: EVERY 4 WEEKS.
     Route: 042
     Dates: start: 20120601

REACTIONS (3)
  - VISUAL ACUITY REDUCED [None]
  - MACULAR OEDEMA [None]
  - CONJUNCTIVAL OEDEMA [None]
